FAERS Safety Report 23745894 (Version 3)
Quarter: 2024Q2

REPORT INFORMATION
  Report Type: Spontaneous
  Country: PL (occurrence: PL)
  Receive Date: 20240416
  Receipt Date: 20240526
  Transmission Date: 20240716
  Serious: Yes (Life-Threatening, Hospitalization, Other)
  Sender: FDA-Public Use
  Company Number: PL-NOVPHSZ-PHHY2019PL025830

PATIENT
  Age: 76 Year
  Sex: Female

DRUGS (63)
  1. LETROZOLE [Suspect]
     Active Substance: LETROZOLE
     Indication: Invasive ductal breast carcinoma
     Dosage: 2.5 MILLIGRAM, ONCE A DAY
     Route: 065
  2. ADRIAMYCIN [Suspect]
     Active Substance: DOXORUBICIN HYDROCHLORIDE
     Indication: Invasive ductal breast carcinoma
     Dosage: 50 MILLIGRAM/SQ. METER, CYCLICAL
     Route: 065
  3. ADRIAMYCIN [Suspect]
     Active Substance: DOXORUBICIN HYDROCHLORIDE
     Dosage: 50 MILLIGRAM/SQ. METER, CYCLICAL  (6 CYCLES)
     Route: 065
     Dates: start: 201503
  4. CAPECITABINE [Suspect]
     Active Substance: CAPECITABINE
     Indication: Breast cancer metastatic
     Dosage: 1500 MILLIGRAM, ONCE A DAY (500 MG, TID (3/DAY) (1500 MG )  )
     Route: 048
     Dates: start: 201707
  5. CAPECITABINE [Suspect]
     Active Substance: CAPECITABINE
     Indication: Metastases to skin
  6. CAPECITABINE [Suspect]
     Active Substance: CAPECITABINE
     Indication: Invasive ductal breast carcinoma
  7. DOCETAXEL [Suspect]
     Active Substance: DOCETAXEL\DOCETAXEL ANHYDROUS
     Indication: Invasive ductal breast carcinoma
     Dosage: 75 MG/M2, (6 CYCLES) CYCLICAL
     Route: 065
     Dates: start: 201503
  8. NEUPOGEN [Suspect]
     Active Substance: FILGRASTIM
     Indication: Prophylaxis
     Dosage: UNK
     Route: 065
  9. NEUPOGEN [Suspect]
     Active Substance: FILGRASTIM
     Indication: Febrile neutropenia
  10. VINORELBINE [Suspect]
     Active Substance: VINORELBINE TARTRATE
     Indication: Breast cancer metastatic
     Dosage: 120 MILLIGRAM 3 WEEKS (40 MG, Q3W)
     Route: 048
     Dates: start: 201707
  11. DIMETHINDENE [Concomitant]
     Active Substance: DIMETHINDENE
     Indication: Product used for unknown indication
     Dosage: UNK
     Route: 065
  12. HALDOL [Concomitant]
     Active Substance: HALOPERIDOL
     Indication: Product used for unknown indication
     Dosage: UNK
     Route: 065
  13. DICLOFENAC [Concomitant]
     Active Substance: DICLOFENAC
     Indication: Product used for unknown indication
     Dosage: UNK
     Route: 065
     Dates: start: 20200503, end: 20200520
  14. IMODIUM [Concomitant]
     Active Substance: LOPERAMIDE HYDROCHLORIDE
     Indication: Product used for unknown indication
     Dosage: UNK
     Route: 065
  15. FEMARA [Suspect]
     Active Substance: LETROZOLE
     Indication: Invasive ductal breast carcinoma
     Dosage: 2.5 MILLIGRAM, ONCE A DAY
     Route: 065
  16. FEMARA [Suspect]
     Active Substance: LETROZOLE
     Indication: HER2 positive breast cancer
     Dosage: 2.5 MILLIGRAM, ONCE A DAY
     Route: 048
     Dates: start: 20190508, end: 20190819
  17. FEMARA [Suspect]
     Active Substance: LETROZOLE
     Dosage: 2.5 MILLIGRAM, ONCE A DAY
     Route: 048
     Dates: start: 20200512, end: 20201022
  18. KYTRIL [Concomitant]
     Active Substance: GRANISETRON HYDROCHLORIDE
     Indication: Product used for unknown indication
     Dosage: UNK
     Route: 065
  19. AZITHROMYCIN [Concomitant]
     Active Substance: AZITHROMYCIN
     Indication: Product used for unknown indication
     Dosage: UNK
     Route: 065
  20. DEXAMETHASONE [Concomitant]
     Active Substance: DEXAMETHASONE
     Indication: Product used for unknown indication
     Dosage: UNK
     Route: 065
     Dates: start: 20191114
  21. MAGNESIUM SUCCINATE [Concomitant]
     Indication: Product used for unknown indication
     Dosage: UNK
     Route: 065
     Dates: start: 20190819
  22. DEXAMETHASONE [Concomitant]
     Active Substance: DEXAMETHASONE
     Indication: Product used for unknown indication
     Dosage: UNK
     Route: 065
  23. DEXAMETHASONE SODIUM PHOSPHATE [Concomitant]
     Active Substance: DEXAMETHASONE PHOSPHATE\DEXAMETHASONE SODIUM PHOSPHATE
     Indication: Product used for unknown indication
     Dosage: UNK
     Route: 065
  24. ONDANSETRON HYDROCHLORIDE [Concomitant]
     Active Substance: ONDANSETRON HYDROCHLORIDE
     Indication: Product used for unknown indication
     Dosage: UNK
     Route: 065
  25. DEXABENE [Concomitant]
     Indication: Product used for unknown indication
     Dosage: UNK
     Route: 065
  26. Vertirosan [Concomitant]
     Indication: Product used for unknown indication
     Dosage: UNK
     Route: 065
  27. Novalgin [Concomitant]
     Indication: Product used for unknown indication
     Dosage: UNK
     Route: 065
     Dates: start: 20180727
  28. TREHALOSE [Concomitant]
     Active Substance: TREHALOSE
     Indication: Product used for unknown indication
     Dosage: UNK
     Route: 065
  29. MORPHINE [Concomitant]
     Active Substance: MORPHINE
     Indication: Product used for unknown indication
     Dosage: UNK
     Route: 065
  30. XGEVA [Concomitant]
     Active Substance: DENOSUMAB
     Indication: Product used for unknown indication
     Dosage: UNK
     Route: 065
     Dates: start: 20181215
  31. ONTRUZANT [Suspect]
     Active Substance: TRASTUZUMAB-DTTB
     Indication: HER2 positive breast cancer
     Dosage: 324 MILLIGRAM
     Route: 042
     Dates: start: 20181129, end: 20190516
  32. ONTRUZANT [Suspect]
     Active Substance: TRASTUZUMAB-DTTB
     Dosage: 324 MILLIGRAM
     Route: 042
     Dates: start: 20190613, end: 20190704
  33. ONTRUZANT [Suspect]
     Active Substance: TRASTUZUMAB-DTTB
     Dosage: 424 MILLIGRAM
     Route: 042
     Dates: start: 20201109, end: 20201109
  34. ONTRUZANT [Suspect]
     Active Substance: TRASTUZUMAB-DTTB
     Dosage: 318 MILLIGRAM
     Route: 042
     Dates: start: 20201130, end: 20201221
  35. SUCRALFATE [Concomitant]
     Active Substance: SUCRALFATE
     Indication: Product used for unknown indication
     Dosage: UNK
     Route: 065
     Dates: start: 20200512
  36. PERJETA [Suspect]
     Active Substance: PERTUZUMAB
     Indication: HER2 positive breast cancer
     Dosage: 840 MILLIGRAM
     Route: 042
     Dates: start: 20180719, end: 20180719
  37. PERJETA [Suspect]
     Active Substance: PERTUZUMAB
     Dosage: 420 MILLIGRAM
     Route: 042
     Dates: start: 20180809, end: 20190704
  38. TYKERB [Suspect]
     Active Substance: LAPATINIB DITOSYLATE
     Indication: HER2 positive breast cancer
     Dosage: 1200 MILLIGRAM
     Route: 048
     Dates: start: 20200326, end: 20200723
  39. TYKERB [Suspect]
     Active Substance: LAPATINIB DITOSYLATE
     Dosage: 1000 MILLIGRAM
     Route: 048
     Dates: start: 20200829, end: 20201022
  40. TYKERB [Suspect]
     Active Substance: LAPATINIB DITOSYLATE
     Dosage: 1250 MILLIGRAM
     Route: 048
     Dates: start: 20200326, end: 20200723
  41. AMOXICILLIN\CLAVULANATE POTASSIUM [Concomitant]
     Active Substance: AMOXICILLIN\CLAVULANATE POTASSIUM
     Indication: Product used for unknown indication
     Dosage: UNK
     Route: 065
  42. RANITIDINE HYDROCHLORIDE [Concomitant]
     Active Substance: RANITIDINE HYDROCHLORIDE
     Indication: Product used for unknown indication
     Dosage: UNK
     Route: 065
  43. KADCYLA [Suspect]
     Active Substance: ADO-TRASTUZUMAB EMTANSINE
     Indication: HER2 positive breast cancer
     Dosage: 201.6 MILLIGRAM
     Route: 042
     Dates: start: 20190829, end: 20190829
  44. KADCYLA [Suspect]
     Active Substance: ADO-TRASTUZUMAB EMTANSINE
     Dosage: 143.1 MILLIGRAM
     Route: 042
     Dates: start: 20191003, end: 20200213
  45. XELODA [Suspect]
     Active Substance: CAPECITABINE
     Indication: HER2 positive breast cancer
     Dosage: 800 MILLIGRAM
     Route: 048
     Dates: start: 20200512, end: 20200519
  46. XELODA [Suspect]
     Active Substance: CAPECITABINE
     Dosage: 1000 MILLIGRAM
     Route: 048
     Dates: start: 20200326, end: 20200430
  47. NAVELBINE [Suspect]
     Active Substance: VINORELBINE TARTRATE
     Indication: Invasive ductal breast carcinoma
     Dosage: 40 MILLIGRAM, EVERY 3 WEEK (20 MG, EVERY 3 WEEKS (40 MG, Q3W))
     Route: 048
     Dates: start: 201707
  48. NAVELBINE [Suspect]
     Active Substance: VINORELBINE TARTRATE
     Indication: HER2 positive breast cancer
     Dosage: 50 MILLIGRAM
     Route: 048
     Dates: start: 20180719, end: 20181130
  49. NAVELBINE [Suspect]
     Active Substance: VINORELBINE TARTRATE
     Indication: Metastases to skin
     Dosage: 50 MILLIGRAM
     Route: 048
     Dates: start: 20181210, end: 20190206
  50. NAVELBINE [Suspect]
     Active Substance: VINORELBINE TARTRATE
     Dosage: 50 MILLIGRAM
     Route: 048
     Dates: start: 20190613, end: 20190705
  51. AROMASIN [Suspect]
     Active Substance: EXEMESTANE
     Indication: HER2 positive breast cancer
     Dosage: 25 MILLIGRAM
     Route: 048
     Dates: start: 20180719, end: 20190507
  52. KONAKION [Concomitant]
     Active Substance: PHYTONADIONE
     Indication: Product used for unknown indication
     Dosage: UNK
     Route: 065
  53. ESOMEPRAZOLE [Concomitant]
     Active Substance: ESOMEPRAZOLE
     Indication: Product used for unknown indication
     Dosage: UNK
     Route: 065
     Dates: start: 20200207
  54. ORNITHINE ASPARTATE [Concomitant]
     Active Substance: ORNITHINE ASPARTATE
     Indication: Product used for unknown indication
     Dosage: UNK
     Route: 065
  55. ZOFRAN [Concomitant]
     Active Substance: ONDANSETRON HYDROCHLORIDE
     Indication: Product used for unknown indication
     Dosage: UNK
     Route: 065
     Dates: start: 20190919
  56. LETROZOLE [Concomitant]
     Active Substance: LETROZOLE
     Indication: Product used for unknown indication
     Dosage: UNK
     Route: 065
  57. HYDROMORPHONE HYDROCHLORIDE [Concomitant]
     Active Substance: HYDROMORPHONE HYDROCHLORIDE
     Indication: Product used for unknown indication
     Dosage: UNK
     Route: 065
  58. HERCEPTIN [Suspect]
     Active Substance: TRASTUZUMAB
     Indication: HER2 positive breast cancer
     Dosage: 330 MILLIGRAM
     Route: 042
     Dates: start: 20180809, end: 20180809
  59. HERCEPTIN [Suspect]
     Active Substance: TRASTUZUMAB
     Dosage: 440 MILLIGRAM
     Route: 042
     Dates: start: 20180719, end: 20180719
  60. HERCEPTIN [Suspect]
     Active Substance: TRASTUZUMAB
     Dosage: 336 MILLIGRAM
     Route: 042
     Dates: start: 20180830, end: 20181105
  61. BETAISODONA [Concomitant]
     Active Substance: POVIDONE-IODINE
     Indication: Product used for unknown indication
     Dosage: UNK
     Route: 065
  62. PREDNISOLONE [Concomitant]
     Active Substance: PREDNISOLONE
     Indication: Product used for unknown indication
     Dosage: UNK
     Route: 065
  63. DEXPANTHENOL\HYALURONATE SODIUM [Concomitant]
     Active Substance: DEXPANTHENOL\HYALURONATE SODIUM
     Indication: Product used for unknown indication
     Dosage: UNK
     Route: 065

REACTIONS (11)
  - Diarrhoea [Unknown]
  - Thrombocytopenic purpura [Unknown]
  - Palmar-plantar erythrodysaesthesia syndrome [Unknown]
  - Nausea [Unknown]
  - Febrile neutropenia [Unknown]
  - Anaemia [Unknown]
  - Vomiting [Unknown]
  - Product use in unapproved indication [Unknown]
  - Off label use [Unknown]
  - Drug intolerance [Unknown]
  - Drug ineffective [Unknown]
